FAERS Safety Report 14489927 (Version 1)
Quarter: 2018Q1

REPORT INFORMATION
  Report Type: Spontaneous
  Country: US (occurrence: US)
  Receive Date: 20180206
  Receipt Date: 20180206
  Transmission Date: 20180509
  Serious: Yes (Other)
  Sender: FDA-Public Use
  Company Number: US-UNICHEM PHARMACEUTICALS (USA) INC-UCM201801-000021

PATIENT
  Age: 48 Year
  Sex: Female

DRUGS (1)
  1. CLONIDINE HCL 0.1 MG TABLET [Suspect]
     Active Substance: CLONIDINE HYDROCHLORIDE
     Dosage: 100 TABLETS

REACTIONS (3)
  - Hypertensive emergency [Recovered/Resolved]
  - Intentional overdose [Recovered/Resolved]
  - Bradycardia [Recovered/Resolved]
